FAERS Safety Report 4356835-7 (Version None)
Quarter: 2004Q2

REPORT INFORMATION
  Report Type: 
  Country: None (occurrence: None)
  Receive Date: 20040507
  Receipt Date: 20040422
  Transmission Date: 20050107
  Serious: Yes (Hospitalization, Other)
  Sender: FDA-Public Use
  Company Number: CA-SHR-04-024407

PATIENT
  Age: 64 Year
  Sex: Female

DRUGS (2)
  1. BETASERON [Suspect]
     Indication: MULTIPLE SCLEROSIS
     Dosage: 8 MIU,EVERY 2D, SUBCUTANEOUS
     Route: 058
     Dates: start: 20000721
  2. ASAPHEN (ACETYLSALICYLIC ACID) COATED TABLET [Concomitant]

REACTIONS (8)
  - ANAEMIA [None]
  - ANGINA PECTORIS [None]
  - BLOOD URINE [None]
  - BLOOD URINE PRESENT [None]
  - DYSPNOEA [None]
  - HYPERTENSION [None]
  - OEDEMA PERIPHERAL [None]
  - RENAL DISORDER [None]
